FAERS Safety Report 5378159-1 (Version None)
Quarter: 2007Q3

REPORT INFORMATION
  Report Type: 
  Country: None (occurrence: None)
  Receive Date: 20070705
  Receipt Date: 20070630
  Transmission Date: 20080115
  Serious: Yes (Life-Threatening)
  Sender: FDA-Public Use
  Company Number: PHBS2007IT11093

PATIENT
  Age: 69 Year
  Sex: Male

DRUGS (3)
  1. CALCIUM CHLORIDE [Suspect]
  2. VOLTAREN [Suspect]
     Indication: MUSCULOSKELETAL CHEST PAIN
     Dates: start: 20070409
  3. VOLTAREN [Suspect]
     Dosage: 50 MG, UNK
     Dates: start: 20070629

REACTIONS (7)
  - DEFAECATION URGENCY [None]
  - DYSPNOEA [None]
  - FEELING ABNORMAL [None]
  - HYPERHIDROSIS [None]
  - LARYNGEAL OEDEMA [None]
  - PARAESTHESIA [None]
  - SWOLLEN TONGUE [None]
